FAERS Safety Report 25071207 (Version 1)
Quarter: 2025Q1

REPORT INFORMATION
  Report Type: Spontaneous
  Country: US (occurrence: US)
  Receive Date: 20250312
  Receipt Date: 20250312
  Transmission Date: 20250409
  Serious: No
  Sender: SANOFI AVENTIS
  Company Number: US-SA-2025SA071209

PATIENT
  Age: 71 Year
  Sex: Female

DRUGS (23)
  1. DUPIXENT [Suspect]
     Active Substance: DUPILUMAB
     Indication: Dermatitis atopic
     Route: 058
  2. FLUOROMETHOLONE [Concomitant]
     Active Substance: FLUOROMETHOLONE
  3. CYMBALTA [Concomitant]
     Active Substance: DULOXETINE HYDROCHLORIDE
  4. METOPROLOL [Concomitant]
     Active Substance: METOPROLOL
  5. PLENVU [Concomitant]
     Active Substance: ASCORBIC ACID\POLYETHYLENE GLYCOL 3350\POTASSIUM CHLORIDE\SODIUM ASCORBATE\SODIUM CHLORIDE\SODIUM SU
  6. HYDROCORTISONE [Concomitant]
     Active Substance: HYDROCORTISONE
  7. LEVOCETIRIZINE [Concomitant]
     Active Substance: LEVOCETIRIZINE
  8. PIMECROLIMUS [Concomitant]
     Active Substance: PIMECROLIMUS
  9. SYSTANE (HYPROMELLOSE 2910 (4000 MPA.S)) [Concomitant]
     Active Substance: HYPROMELLOSE 2910 (4000 MPA.S)
  10. MONTELUKAST [Concomitant]
     Active Substance: MONTELUKAST
  11. HYDROCHLOROTHIAZIDE [Concomitant]
     Active Substance: HYDROCHLOROTHIAZIDE
  12. EPINEPHRINE [Concomitant]
     Active Substance: EPINEPHRINE
  13. LOSARTAN [Concomitant]
     Active Substance: LOSARTAN
  14. ROSUVASTATIN [Concomitant]
     Active Substance: ROSUVASTATIN
  15. RIZATRIPTAN [Concomitant]
     Active Substance: RIZATRIPTAN
  16. TOPAMAX [Concomitant]
     Active Substance: TOPIRAMATE
  17. SIMETHICONE (DIMETHICONE) [Concomitant]
     Active Substance: DIMETHICONE
  18. IBUPROFEN [Concomitant]
     Active Substance: IBUPROFEN
  19. ESTRADIOL [Concomitant]
     Active Substance: ESTRADIOL
  20. MUPIROCIN [Concomitant]
     Active Substance: MUPIROCIN
  21. CYCLOSPORINE [Concomitant]
     Active Substance: CYCLOSPORINE
  22. FLUCONAZOLE [Concomitant]
     Active Substance: FLUCONAZOLE
  23. KETOCONAZOLE [Concomitant]
     Active Substance: KETOCONAZOLE

REACTIONS (1)
  - Vision blurred [Unknown]
